FAERS Safety Report 15772773 (Version 1)
Quarter: 2018Q4

REPORT INFORMATION
  Report Type: Spontaneous
  Country: US (occurrence: US)
  Receive Date: 20181228
  Receipt Date: 20181228
  Transmission Date: 20190205
  Serious: No
  Sender: FDA-Public Use
  Company Number: US-PFIZER INC-2018531229

PATIENT
  Age: 62 Year
  Sex: Male

DRUGS (1)
  1. GENOTROPIN MQ [Suspect]
     Active Substance: SOMATROPIN
     Indication: EMPTY SELLA SYNDROME
     Dosage: 0.4 MG, DAILY

REACTIONS (7)
  - Thyroxine free increased [Unknown]
  - Insulin-like growth factor increased [Unknown]
  - Blood glucose increased [Unknown]
  - Blood calcium decreased [Unknown]
  - Blood potassium increased [Unknown]
  - Protein total decreased [Unknown]
  - Product use in unapproved indication [Unknown]

NARRATIVE: CASE EVENT DATE: 20170411
